FAERS Safety Report 10096916 (Version 2)
Quarter: 2014Q2

REPORT INFORMATION
  Report Type: Spontaneous
  Country: JP (occurrence: JP)
  Receive Date: 20140422
  Receipt Date: 20140521
  Transmission Date: 20141212
  Serious: Yes (Hospitalization, Other)
  Sender: FDA-Public Use
  Company Number: PHHY2014JP048250

PATIENT
  Age: 77 Year
  Sex: Female

DRUGS (4)
  1. RIVASTIGMIN [Suspect]
     Indication: DEMENTIA ALZHEIMER^S TYPE
     Dosage: 4.5 MG, ONCE A DAY (1.9 MG/24 HOURS)
     Route: 062
     Dates: start: 201312, end: 20140331
  2. RIVASTIGMIN [Suspect]
     Dosage: 9 MG, ONCE A DAY (4.6MG/24 HOURS)
     Route: 062
     Dates: start: 20140401
  3. RIVASTIGMIN [Suspect]
     Dosage: UNK UKN, UNK (INCREASED DOSE)
     Route: 062
     Dates: start: 20140412
  4. RIVASTIGMIN [Suspect]
     Dosage: 4.5 MG, ONCE A DAY (1.9 MG/24 HOURS)
     Route: 062
     Dates: start: 20140415

REACTIONS (11)
  - Altered state of consciousness [Recovered/Resolved]
  - Diarrhoea [Recovered/Resolved]
  - Vomiting [Recovered/Resolved]
  - Nausea [Recovered/Resolved]
  - Overdose [Unknown]
  - Treatment noncompliance [Unknown]
  - Blood cholinesterase decreased [Recovered/Resolved]
  - Miosis [Recovered/Resolved]
  - Faecal incontinence [Recovered/Resolved]
  - Urinary incontinence [Recovered/Resolved]
  - Wrong technique in drug usage process [Unknown]
